FAERS Safety Report 21396472 (Version 1)
Quarter: 2022Q3

REPORT INFORMATION
  Report Type: Spontaneous
  Country: RU (occurrence: RU)
  Receive Date: 20220930
  Receipt Date: 20220930
  Transmission Date: 20221026
  Serious: Yes (Other)
  Sender: FDA-Public Use
  Company Number: RU-R-PHARM US LLC-2022RPM00017

PATIENT
  Age: 74 Year
  Sex: Female
  Weight: 58 kg

DRUGS (1)
  1. IXEMPRA [Suspect]
     Active Substance: IXABEPILONE
     Indication: Breast cancer
     Dosage: 11 COURSES OF IXEMPRA
     Dates: start: 2021

REACTIONS (7)
  - Metastases to lung [Unknown]
  - Metastases to pleura [Unknown]
  - Metastases to liver [Unknown]
  - Hyperfibrinogenaemia [Unknown]
  - Lymphadenopathy [Unknown]
  - Asthenia [Unknown]
  - Fatigue [Unknown]

NARRATIVE: CASE EVENT DATE: 20210910
